FAERS Safety Report 12687619 (Version 2)
Quarter: 2016Q3

REPORT INFORMATION
  Report Type: Spontaneous
  Country: US (occurrence: US)
  Receive Date: 20160825
  Receipt Date: 20160928
  Transmission Date: 20161109
  Serious: Yes (Other)
  Sender: FDA-Public Use
  Company Number: US-MYLANLABS-2016M1006297

PATIENT

DRUGS (10)
  1. PREDNISONE. [Concomitant]
     Active Substance: PREDNISONE
  2. CLONIDINE HYDROCHLORIDE TABLETS, USP [Suspect]
     Active Substance: CLONIDINE HYDROCHLORIDE
     Indication: HYPERTENSION
     Dosage: 0.2 MG, BID
     Route: 048
     Dates: start: 20150710, end: 2015
  3. TYLENOL [Concomitant]
     Active Substance: ACETAMINOPHEN
  4. ALBUTEROL                          /00139501/ [Concomitant]
     Active Substance: ALBUTEROL
     Dosage: UNK
  5. NAPROSYN [Concomitant]
     Active Substance: NAPROXEN
  6. DILTIAZEM XR [Concomitant]
     Active Substance: DILTIAZEM
     Dosage: 420 MG, QD
  7. BENADRYL                           /00945501/ [Concomitant]
  8. MOTRIN [Concomitant]
     Active Substance: IBUPROFEN
  9. ZAFIRLUKAST. [Concomitant]
     Active Substance: ZAFIRLUKAST
     Dosage: 20 MG, BID
  10. FLEXERIL [Concomitant]
     Active Substance: CYCLOBENZAPRINE HYDROCHLORIDE

REACTIONS (5)
  - Neuralgia [Recovered/Resolved]
  - Conjunctivitis [Recovered/Resolved]
  - Lupus-like syndrome [Recovered/Resolved]
  - Reaction to drug excipients [Recovered/Resolved]
  - Central nervous system inflammation [Recovered/Resolved]

NARRATIVE: CASE EVENT DATE: 201507
